FAERS Safety Report 6420214-9 (Version None)
Quarter: 2009Q4

REPORT INFORMATION
  Report Type: 
  Country: None (occurrence: None)
  Receive Date: 20091029
  Receipt Date: 20091016
  Transmission Date: 20100525
  Serious: Yes (Hospitalization)
  Sender: FDA-Public Use
  Company Number: PHEH2009US14150

PATIENT
  Sex: Female
  Weight: 72.562 kg

DRUGS (11)
  1. RECLAST [Suspect]
     Dosage: 5 MG, ONCE/SINGLE
     Dates: start: 20090815, end: 20090815
  2. VITAMIN D [Concomitant]
     Dosage: UNK, UNK
  3. GABAPENTIN [Concomitant]
     Dosage: 300 MG, UNK
  4. TRAZODONE [Concomitant]
     Dosage: UNK, UNK
  5. PRILOSEC [Concomitant]
     Dosage: 20 MG, BID
  6. CALCIUM [Concomitant]
     Dosage: 500 MG, BID
  7. CARBIDOPA + LEVODOPA [Concomitant]
     Dosage: UNK, UNK
  8. DARVOCET-N 100 [Concomitant]
     Dosage: UNK, UNK
  9. CYMBALTA [Concomitant]
     Dosage: UNK, UNK
  10. LORAZEPAM [Concomitant]
     Dosage: UNK, UNK
  11. DILTIAZEM [Concomitant]
     Dosage: UNK, UNK

REACTIONS (6)
  - ABNORMAL BEHAVIOUR [None]
  - DEPRESSION [None]
  - DISORIENTATION [None]
  - INSOMNIA [None]
  - PARANOIA [None]
  - SUICIDAL IDEATION [None]
